FAERS Safety Report 5328028-8 (Version None)
Quarter: 2007Q2

REPORT INFORMATION
  Report Type: 
  Country: None (occurrence: None)
  Receive Date: 20070517
  Receipt Date: 20070507
  Transmission Date: 20071010
  Serious: Yes (Disabling, Other)
  Sender: FDA-Public Use
  Company Number: US-PFIZER INC-2007038088

PATIENT
  Sex: Male
  Weight: 111.36 kg

DRUGS (9)
  1. CHANTIX [Suspect]
     Indication: SMOKING CESSATION THERAPY
  2. DOXYCYCLINE [Suspect]
  3. LEVAQUIN [Suspect]
  4. OXYCODONE HCL [Suspect]
     Indication: PAIN
  5. PROPOXYPHENE NAPSYLATE [Concomitant]
  6. COREG [Concomitant]
  7. EFFEXOR [Concomitant]
  8. NORVASC [Concomitant]
  9. SYNTHROID [Concomitant]

REACTIONS (6)
  - BEDRIDDEN [None]
  - DYSGEUSIA [None]
  - FEELING ABNORMAL [None]
  - HIP SURGERY [None]
  - PAIN [None]
  - WEIGHT DECREASED [None]
